FAERS Safety Report 15337511 (Version 1)
Quarter: 2018Q3

REPORT INFORMATION
  Report Type: Spontaneous
  Country: US (occurrence: US)
  Receive Date: 20180831
  Receipt Date: 20180831
  Transmission Date: 20181010
  Serious: No
  Sender: FDA-Public Use
  Company Number: US-PFIZER INC-2018348248

PATIENT
  Sex: Female

DRUGS (1)
  1. GABAPENTIN. [Suspect]
     Active Substance: GABAPENTIN
     Indication: NEURALGIA
     Dosage: 900 MG, 3X/DAY (THREE 300MG CAPSULES FOR A TOTAL OF 900MG BY MOUTH THREE TIMES A DAY)
     Route: 048

REACTIONS (4)
  - Feeling abnormal [Unknown]
  - Overdose [Unknown]
  - Drug ineffective for unapproved indication [Unknown]
  - Feeling drunk [Unknown]
